FAERS Safety Report 9204171 (Version 8)
Quarter: 2014Q2

REPORT INFORMATION
  Report Type: Report from Study
  Country: JP (occurrence: JP)
  Receive Date: 20130402
  Receipt Date: 20140505
  Transmission Date: 20141212
  Serious: Yes (Other)
  Sender: FDA-Public Use
  Company Number: JP-JNJFOC-20130214793

PATIENT
  Age: 63 Year
  Sex: Male
  Weight: 73 kg

DRUGS (20)
  1. STELARA [Suspect]
     Indication: PSORIATIC ARTHROPATHY
     Route: 058
     Dates: start: 20120629, end: 20120629
  2. STELARA [Suspect]
     Indication: PSORIATIC ARTHROPATHY
     Route: 058
     Dates: start: 20120726, end: 20120726
  3. STELARA [Suspect]
     Indication: PSORIATIC ARTHROPATHY
     Route: 058
     Dates: start: 20130110, end: 20130110
  4. STELARA [Suspect]
     Indication: PSORIATIC ARTHROPATHY
     Route: 058
     Dates: start: 20130328, end: 20130328
  5. STELARA [Suspect]
     Indication: PSORIATIC ARTHROPATHY
     Route: 058
     Dates: start: 20130704, end: 20130704
  6. STELARA [Suspect]
     Indication: PSORIATIC ARTHROPATHY
     Route: 058
     Dates: start: 20121018, end: 20121018
  7. ROHYPNOL [Concomitant]
     Indication: INSOMNIA
     Route: 048
     Dates: end: 20120701
  8. BAYASPIRIN [Concomitant]
     Indication: GASTRIC ULCER
     Dosage: ENTERIC COATING
     Route: 048
  9. BLOPRESS [Concomitant]
     Indication: HYPERTENSION
     Route: 048
  10. ANTEBATE [Concomitant]
     Indication: PSORIATIC ARTHROPATHY
     Route: 061
  11. ANTEBATE [Concomitant]
     Indication: PSORIATIC ARTHROPATHY
     Route: 061
  12. OXAROL [Concomitant]
     Indication: PSORIATIC ARTHROPATHY
     Route: 061
  13. PREDONINE [Concomitant]
     Indication: PROPHYLAXIS
     Route: 048
     Dates: start: 20121017, end: 20121019
  14. PREDONINE [Concomitant]
     Indication: PROPHYLAXIS
     Route: 048
     Dates: start: 20130110, end: 20130329
  15. PREDONINE [Concomitant]
     Indication: PROPHYLAXIS
     Route: 048
     Dates: start: 20130703
  16. GASTER [Concomitant]
     Indication: GASTRIC ULCER
     Route: 048
     Dates: start: 20121109
  17. RHYTHMY [Concomitant]
     Indication: INSOMNIA
     Route: 048
     Dates: start: 20121101
  18. PLAVIX [Concomitant]
     Indication: PROPHYLAXIS
     Route: 048
     Dates: start: 20121109
  19. PLAVIX [Concomitant]
     Indication: ACUTE CORONARY SYNDROME
     Route: 048
     Dates: start: 20121109
  20. CEFZON [Concomitant]
     Indication: INFECTED DERMAL CYST
     Route: 048
     Dates: start: 20130110, end: 20130116

REACTIONS (2)
  - Infected dermal cyst [Recovering/Resolving]
  - Off label use [Unknown]
